FAERS Safety Report 13709747 (Version 1)
Quarter: 2017Q3

REPORT INFORMATION
  Report Type: Spontaneous
  Country: FR (occurrence: FR)
  Receive Date: 20170703
  Receipt Date: 20170703
  Transmission Date: 20171127
  Serious: Yes (Life-Threatening, Other)
  Sender: FDA-Public Use
  Company Number: FR-BRISTOL-MYERS SQUIBB COMPANY-BMS-2017-057118

PATIENT
  Age: 59 Year
  Sex: Male

DRUGS (2)
  1. KEYTRUDA [Suspect]
     Active Substance: PEMBROLIZUMAB
     Indication: METASTATIC MALIGNANT MELANOMA
     Dosage: UNK
     Route: 042
     Dates: start: 20150505, end: 20170217
  2. YERVOY [Suspect]
     Active Substance: IPILIMUMAB
     Indication: METASTATIC MALIGNANT MELANOMA
     Dosage: UNK
     Route: 042
     Dates: start: 201410, end: 20141219

REACTIONS (4)
  - General physical health deterioration [Unknown]
  - Nervous system disorder [Unknown]
  - B-cell lymphoma [Not Recovered/Not Resolved]
  - Hypopituitarism [Unknown]

NARRATIVE: CASE EVENT DATE: 20170429
